FAERS Safety Report 18952884 (Version 1)
Quarter: 2021Q1

REPORT INFORMATION
  Report Type: Spontaneous
  Country: US (occurrence: US)
  Receive Date: 20210226
  Receipt Date: 20210226
  Transmission Date: 20210420
  Serious: Yes (Life-Threatening)
  Sender: FDA-Public Use
  Company Number: None

PATIENT
  Age: 69 Year
  Sex: Female
  Weight: 45.9 kg

DRUGS (3)
  1. REGORAFENIB. [Suspect]
     Active Substance: REGORAFENIB
     Indication: COLON CANCER METASTATIC
     Route: 048
     Dates: start: 20201118, end: 20201201
  2. LEVOTHYROXINE 100 MCG DAILY [Concomitant]
  3. APIXIBAN 5 MG BID [Concomitant]

REACTIONS (10)
  - Acute kidney injury [None]
  - Lip swelling [None]
  - Blood lactic acid increased [None]
  - Swollen tongue [None]
  - Hypotension [None]
  - Dyspnoea [None]
  - Anaphylactic reaction [None]
  - Small intestinal obstruction [None]
  - Dysphagia [None]
  - Rash [None]

NARRATIVE: CASE EVENT DATE: 20201201
